FAERS Safety Report 4983233-5 (Version None)
Quarter: 2006Q2

REPORT INFORMATION
  Report Type: 
  Country: None (occurrence: None)
  Receive Date: 20060419
  Receipt Date: 20060406
  Transmission Date: 20061013
  Serious: Yes (Hospitalization)
  Sender: FDA-Public Use
  Company Number: 2006030570

PATIENT
  Age: 43 Year
  Sex: Male
  Weight: 57 kg

DRUGS (7)
  1. SUTENT [Suspect]
     Indication: RENAL CELL CARCINOMA STAGE UNSPECIFIED
     Dosage: SEE IMAGE
     Route: 048
     Dates: start: 20060127, end: 20060223
  2. SUTENT [Suspect]
     Indication: RENAL CELL CARCINOMA STAGE UNSPECIFIED
     Dosage: SEE IMAGE
     Route: 048
     Dates: start: 20060309
  3. FERROUS SULFATE TAB [Concomitant]
  4. PREVISCAN (FLUINDIONE) [Concomitant]
  5. OMEPRAZOLE [Concomitant]
  6. PREDNISOLONE [Concomitant]
  7. IMOVANE (ZOPICLONE) [Concomitant]

REACTIONS (4)
  - ECZEMA [None]
  - ERYTHEMA MULTIFORME [None]
  - PURPURA [None]
  - SKIN DISORDER [None]
